FAERS Safety Report 12328242 (Version 1)
Quarter: 2016Q2

REPORT INFORMATION
  Report Type: Report from Study
  Country: US (occurrence: US)
  Receive Date: 20160503
  Receipt Date: 20160503
  Transmission Date: 20160815
  Serious: Yes (Hospitalization)
  Sender: FDA-Public Use
  Company Number: US-GILEAD-2016-0197429

PATIENT
  Age: 82 Year
  Sex: Female

DRUGS (2)
  1. IDELALISIB [Suspect]
     Active Substance: IDELALISIB
     Indication: CHRONIC LYMPHOCYTIC LEUKAEMIA
     Dosage: 150 MG, BID
     Route: 048
     Dates: start: 20151118, end: 20160310
  2. IDELALISIB [Suspect]
     Active Substance: IDELALISIB
     Indication: B-CELL SMALL LYMPHOCYTIC LYMPHOMA

REACTIONS (4)
  - Unevaluable event [Unknown]
  - Pain in extremity [Unknown]
  - Activities of daily living impaired [Unknown]
  - Musculoskeletal pain [Unknown]

NARRATIVE: CASE EVENT DATE: 20160111
